FAERS Safety Report 25166261 (Version 1)
Quarter: 2025Q2

REPORT INFORMATION
  Report Type: Spontaneous
  Country: CO (occurrence: CO)
  Receive Date: 20250407
  Receipt Date: 20250407
  Transmission Date: 20250716
  Serious: Yes (Hospitalization, Other)
  Sender: REGENERON
  Company Number: CO-SA-2025SA015113

PATIENT
  Age: 69 Year
  Sex: Male

DRUGS (1)
  1. PRALUENT [Suspect]
     Active Substance: ALIROCUMAB
     Indication: Hypercholesterolaemia
     Dosage: 150 MG, QOW
     Route: 058
     Dates: start: 2021

REACTIONS (2)
  - Myocardial infarction [Recovering/Resolving]
  - Cardiac operation [Recovered/Resolved]

NARRATIVE: CASE EVENT DATE: 20230501
